FAERS Safety Report 23745538 (Version 1)
Quarter: 2024Q2

REPORT INFORMATION
  Report Type: Spontaneous
  Country: GB (occurrence: GB)
  Receive Date: 20240416
  Receipt Date: 20240416
  Transmission Date: 20240716
  Serious: No
  Sender: FDA-Public Use
  Company Number: None

PATIENT
  Age: 21 Year
  Sex: Female

DRUGS (1)
  1. ARIPIPRAZOLE [Suspect]
     Active Substance: ARIPIPRAZOLE
     Indication: Anxiety
     Dosage: 10 MILLIGRAM, QD (TABLET, 10MG IN MORNING)
     Route: 065
     Dates: start: 20231230, end: 20231230

REACTIONS (1)
  - Vomiting [Recovered/Resolved with Sequelae]
